FAERS Safety Report 13127430 (Version 4)
Quarter: 2018Q3

REPORT INFORMATION
  Report Type: Spontaneous
  Country: US (occurrence: US)
  Receive Date: 20170118
  Receipt Date: 20180828
  Transmission Date: 20181010
  Serious: Yes (Death, Other)
  Sender: FDA-Public Use
  Company Number: US-ASTRAZENECA-2017SE03354

PATIENT
  Age: 770 Month
  Sex: Female
  Weight: 64.9 kg

DRUGS (71)
  1. PROTONIX [Suspect]
     Active Substance: PANTOPRAZOLE SODIUM
     Indication: GASTROOESOPHAGEAL REFLUX DISEASE
     Dosage: 40.0MG UNKNOWN
     Route: 065
     Dates: start: 200807, end: 2016
  2. LYRICA [Concomitant]
     Active Substance: PREGABALIN
     Route: 048
     Dates: start: 20070410
  3. LEVOTHYROXINE. [Concomitant]
     Active Substance: LEVOTHYROXINE
     Dates: start: 2013
  4. ALBUTEROL SULFATE. [Concomitant]
     Active Substance: ALBUTEROL SULFATE
     Dates: start: 2010
  5. SOTALOL HYDROCHLORIDE. [Concomitant]
     Active Substance: SOTALOL HYDROCHLORIDE
     Dates: start: 2014
  6. LEVAQUIN [Concomitant]
     Active Substance: LEVOFLOXACIN
     Dates: start: 2007
  7. MAGNESIUM OXIDE. [Concomitant]
     Active Substance: MAGNESIUM OXIDE
     Dates: start: 2008
  8. MELOXICAM. [Concomitant]
     Active Substance: MELOXICAM
     Dates: start: 2010
  9. AMIODARONE [Concomitant]
     Active Substance: AMIODARONE
     Dates: start: 2012
  10. RANITIDINE. [Concomitant]
     Active Substance: RANITIDINE
  11. SIMVASTATIN. [Concomitant]
     Active Substance: SIMVASTATIN
     Route: 048
     Dates: start: 20070410
  12. LOSARTAN. [Concomitant]
     Active Substance: LOSARTAN
     Dates: start: 2007
  13. GLIPIZIDE. [Concomitant]
     Active Substance: GLIPIZIDE
     Dates: start: 2015
  14. CYCLOBENZAPRINE. [Concomitant]
     Active Substance: CYCLOBENZAPRINE
     Dates: start: 2015
  15. CYMBALTA [Concomitant]
     Active Substance: DULOXETINE HYDROCHLORIDE
     Dates: start: 2007
  16. METFORMINE [Concomitant]
     Active Substance: METFORMIN HYDROCHLORIDE
     Dates: start: 2007
  17. FAMOTIDINE. [Concomitant]
     Active Substance: FAMOTIDINE
     Dates: start: 2008
  18. TRAMADOL HYDROCHLORIDE. [Concomitant]
     Active Substance: TRAMADOL HYDROCHLORIDE
     Dates: start: 2008, end: 2013
  19. LORAZEPAM. [Concomitant]
     Active Substance: LORAZEPAM
     Dates: start: 2012
  20. LYRICA [Concomitant]
     Active Substance: PREGABALIN
     Route: 048
     Dates: start: 2007
  21. SPIRIVA [Concomitant]
     Active Substance: TIOTROPIUM BROMIDE MONOHYDRATE
     Dates: start: 2012
  22. NOVOLOG [Concomitant]
     Active Substance: INSULIN ASPART
     Dates: start: 2015
  23. FENOFIBRATE. [Concomitant]
     Active Substance: FENOFIBRATE
     Dates: start: 2012
  24. NITROSTAT [Concomitant]
     Active Substance: NITROGLYCERIN
     Dates: start: 2015
  25. DURAGESIC [Concomitant]
     Active Substance: FENTANYL
     Dates: start: 2008
  26. SIMVASTATIN. [Concomitant]
     Active Substance: SIMVASTATIN
     Dates: start: 2008
  27. LOVAZA [Concomitant]
     Active Substance: OMEGA-3-ACID ETHYL ESTERS
     Dates: start: 2008
  28. NEXIUM [Suspect]
     Active Substance: ESOMEPRAZOLE MAGNESIUM
     Indication: GASTROOESOPHAGEAL REFLUX DISEASE
     Route: 048
     Dates: start: 20070410
  29. HYDROCHLOROTHIAZIDE. [Concomitant]
     Active Substance: HYDROCHLOROTHIAZIDE
     Dosage: 12.5MG UNKNOWN
     Dates: start: 20070418
  30. HYDROCODONE [Concomitant]
     Active Substance: HYDROCODONE
     Dates: start: 2007
  31. DILTIAZEM. [Concomitant]
     Active Substance: DILTIAZEM
     Dates: start: 2010
  32. NAPROXEN. [Concomitant]
     Active Substance: NAPROXEN
     Dates: start: 2007, end: 2008
  33. ACTONEL [Concomitant]
     Active Substance: RISEDRONATE SODIUM
     Dates: start: 2008
  34. WARFARIN [Concomitant]
     Active Substance: WARFARIN
     Dates: start: 2009
  35. VITAMIN D [Concomitant]
     Active Substance: CHOLECALCIFEROL
  36. HYDROCODONE [Concomitant]
     Active Substance: HYDROCODONE
     Dates: start: 2013
  37. GLYBURIDE. [Concomitant]
     Active Substance: GLYBURIDE
     Dates: start: 2012
  38. CRESTOR [Concomitant]
     Active Substance: ROSUVASTATIN CALCIUM
     Dates: start: 2007, end: 2011
  39. ATENOLOL. [Concomitant]
     Active Substance: ATENOLOL
     Dates: start: 2007
  40. LOTREL [Concomitant]
     Active Substance: AMLODIPINE BESYLATE\BENAZEPRIL HYDROCHLORIDE
     Dates: start: 2007
  41. CARVEDILOL. [Concomitant]
     Active Substance: CARVEDILOL
     Dates: start: 2010
  42. AMIODARONE [Concomitant]
     Active Substance: AMIODARONE
     Dates: start: 2012
  43. NEXIUM [Suspect]
     Active Substance: ESOMEPRAZOLE MAGNESIUM
     Indication: GASTROOESOPHAGEAL REFLUX DISEASE
     Route: 048
     Dates: start: 200704, end: 201604
  44. NASONEX [Concomitant]
     Active Substance: MOMETASONE FUROATE
     Dates: start: 20070202
  45. HYDROCODONE?APAP [Concomitant]
     Active Substance: ACETAMINOPHEN\HYDROCODONE
     Route: 048
     Dates: start: 20070222
  46. METOPROLOL. [Concomitant]
     Active Substance: METOPROLOL
     Dates: start: 2012
  47. NITROGLYCERINE [Concomitant]
     Active Substance: NITROGLYCERIN
     Dates: start: 2015
  48. FEXOFENADINE [Concomitant]
     Active Substance: FEXOFENADINE\FEXOFENADINE HYDROCHLORIDE
     Dates: start: 2007, end: 2011
  49. TRICOR [Concomitant]
     Active Substance: FENOFIBRATE
     Dates: start: 2007
  50. HCTZ [Concomitant]
     Active Substance: HYDROCHLOROTHIAZIDE
     Dates: start: 2007
  51. CELEBREX [Concomitant]
     Active Substance: CELECOXIB
     Dates: start: 2007
  52. AMLODIPINE [Concomitant]
     Active Substance: AMLODIPINE BESYLATE
     Dates: start: 2008
  53. ZANTAC [Concomitant]
     Active Substance: RANITIDINE HYDROCHLORIDE
     Dates: start: 2016
  54. FEXOFENADINE [Concomitant]
     Active Substance: FEXOFENADINE\FEXOFENADINE HYDROCHLORIDE
     Route: 048
     Dates: start: 20070202
  55. PROMETHAZINE [Concomitant]
     Active Substance: PROMETHAZINE\PROMETHAZINE HYDROCHLORIDE
     Route: 048
     Dates: start: 20080707
  56. MELOXICAM. [Concomitant]
     Active Substance: MELOXICAM
     Dates: start: 20070418
  57. COMBIVENT [Concomitant]
     Active Substance: ALBUTEROL SULFATE\IPRATROPIUM BROMIDE
     Dates: start: 2014
  58. DULOXETINE. [Concomitant]
     Active Substance: DULOXETINE
     Dates: start: 2014
  59. ZETIA [Concomitant]
     Active Substance: EZETIMIBE
     Dates: start: 2013
  60. DIAZEPAM. [Concomitant]
     Active Substance: DIAZEPAM
     Dates: start: 2007
  61. HYDRALAZINE [Concomitant]
     Active Substance: HYDRALAZINE HYDROCHLORIDE
  62. VITAMIN B NOS [Concomitant]
     Active Substance: VITAMIN B
  63. PRILOSEC [Suspect]
     Active Substance: OMEPRAZOLE MAGNESIUM
     Indication: GASTROOESOPHAGEAL REFLUX DISEASE
     Dosage: 20.0MG UNKNOWN
     Route: 048
     Dates: start: 200807, end: 201205
  64. PROMETHAZINE [Concomitant]
     Active Substance: PROMETHAZINE\PROMETHAZINE HYDROCHLORIDE
     Dates: start: 2007
  65. METFORMIN [Concomitant]
     Active Substance: METFORMIN HYDROCHLORIDE
     Dates: start: 2007
  66. HYDROCHLOROTHIAZIDE. [Concomitant]
     Active Substance: HYDROCHLOROTHIAZIDE
     Dates: start: 2007
  67. METOCLOPRAMIDE. [Concomitant]
     Active Substance: METOCLOPRAMIDE
     Dates: start: 2008, end: 2010
  68. BENAZEPRIL [Concomitant]
     Active Substance: BENAZEPRIL HYDROCHLORIDE
     Dates: start: 2008
  69. KADIAN [Concomitant]
     Active Substance: MORPHINE SULFATE
     Dates: start: 2008
  70. CLONIDINE HYDROCHLORIDE. [Concomitant]
     Active Substance: CLONIDINE HYDROCHLORIDE
     Dates: start: 2010
  71. PROCHLORPERAZINE. [Concomitant]
     Active Substance: PROCHLORPERAZINE
     Dates: start: 2010

REACTIONS (5)
  - Renal cyst [Unknown]
  - Acute kidney injury [Fatal]
  - Hyperkalaemia [Fatal]
  - Renal failure [Unknown]
  - Chronic kidney disease [Unknown]

NARRATIVE: CASE EVENT DATE: 201012
